FAERS Safety Report 16347883 (Version 4)
Quarter: 2023Q4

REPORT INFORMATION
  Report Type: Spontaneous
  Country: PT (occurrence: PT)
  Receive Date: 20190523
  Receipt Date: 20231130
  Transmission Date: 20240110
  Serious: Yes (Life-Threatening, Other)
  Sender: FDA-Public Use
  Company Number: PT-GKKIN-201809014-PI511454-12

PATIENT
  Age: 38 Year
  Sex: Male

DRUGS (18)
  1. OXAZEPAM [Suspect]
     Active Substance: OXAZEPAM
     Indication: Hepatitis C
     Dosage: UNK
     Route: 065
  2. OXAZEPAM [Suspect]
     Active Substance: OXAZEPAM
     Indication: HIV infection
     Dosage: UNK
     Route: 065
  3. OXAZEPAM [Suspect]
     Active Substance: OXAZEPAM
     Indication: Chronic hepatitis C
     Dosage: UNK,1 ML OF TRIAMCINOLONE 40 MG INJECTED
     Route: 065
  4. MIRTAZAPINE [Suspect]
     Active Substance: MIRTAZAPINE
     Indication: Hepatitis C
     Dosage: UNK
     Route: 065
  5. MIRTAZAPINE [Suspect]
     Active Substance: MIRTAZAPINE
     Indication: HIV infection
     Dosage: 1 ML OF TRIAMCINOLONE 40 MG INJECTEDUNK
     Route: 065
  6. MIRTAZAPINE [Suspect]
     Active Substance: MIRTAZAPINE
     Indication: Chronic hepatitis C
     Dosage: UNK
     Route: 065
  7. EMTRICITABINE\TENOFOVIR DISOPROXIL [Suspect]
     Active Substance: EMTRICITABINE\TENOFOVIR DISOPROXIL
     Indication: Chronic hepatitis C
     Dosage: 1 ML OF TRIAMCINOLONE 40 MG INJECTED
     Route: 065
  8. EMTRICITABINE\TENOFOVIR DISOPROXIL [Suspect]
     Active Substance: EMTRICITABINE\TENOFOVIR DISOPROXIL
     Indication: Hepatitis C
     Dosage: UNK
     Route: 065
  9. EMTRICITABINE\TENOFOVIR DISOPROXIL [Suspect]
     Active Substance: EMTRICITABINE\TENOFOVIR DISOPROXIL
     Indication: HIV infection
     Dosage: UNK
     Route: 065
  10. LOPINAVIR\RITONAVIR [Suspect]
     Active Substance: LOPINAVIR\RITONAVIR
     Indication: Hepatitis C
     Dosage: 1 ML OF TRIAMCINOLONE 40 MG INJECTED
     Route: 065
  11. LOPINAVIR\RITONAVIR [Suspect]
     Active Substance: LOPINAVIR\RITONAVIR
     Indication: HIV infection
     Dosage: UNK
     Route: 065
  12. LOPINAVIR\RITONAVIR [Suspect]
     Active Substance: LOPINAVIR\RITONAVIR
     Indication: Chronic hepatitis C
     Dosage: UNK
     Route: 065
  13. ZIDOVUDINE [Suspect]
     Active Substance: ZIDOVUDINE
     Indication: Chronic hepatitis C
     Dosage: UNK
     Route: 065
  14. ZIDOVUDINE [Suspect]
     Active Substance: ZIDOVUDINE
     Indication: Hepatitis C
     Dosage: UNK 1 ML OF TRIAMCINOLONE 40 MG INJECTED
     Route: 065
  15. ZIDOVUDINE [Suspect]
     Active Substance: ZIDOVUDINE
     Indication: HIV infection
     Dosage: UNK
     Route: 065
  16. METHADONE [Suspect]
     Active Substance: METHADONE HYDROCHLORIDE
     Indication: Hepatitis C
     Dosage: 1 ML OF TRIAMCINOLONE 40 MG INJECTED
     Route: 065
  17. METHADONE [Suspect]
     Active Substance: METHADONE HYDROCHLORIDE
     Indication: Chronic hepatitis C
     Dosage: UNK
     Route: 065
  18. METHADONE [Suspect]
     Active Substance: METHADONE HYDROCHLORIDE
     Indication: HIV infection
     Dosage: UNK
     Route: 065

REACTIONS (2)
  - Hepatic fibrosis [Unknown]
  - Drug-induced liver injury [Unknown]
